FAERS Safety Report 4458448-5 (Version None)
Quarter: 2004Q3

REPORT INFORMATION
  Report Type: 
  Country: None (occurrence: None)
  Receive Date: 20040922
  Receipt Date: 20040112
  Transmission Date: 20050211
  Serious: Yes (Hospitalization)
  Sender: FDA-Public Use
  Company Number: US-SHR-03-015147

PATIENT
  Age: 35 Year
  Sex: Female
  Weight: 59 kg

DRUGS (5)
  1. BETASERON [Suspect]
     Indication: MULTIPLE SCLEROSIS
     Dosage: SUBCUTANEOUS
     Route: 058
     Dates: start: 19990101
  2. AMITRIPTYLINE HCL [Concomitant]
  3. INDERAL - SLOW RELEASE (PROPRANOLOL HYDROCHLORIDE) [Concomitant]
  4. UNASYN FOR INJECTION (SULBACTAM SODIUM, AMPICILLIN SODIUM) [Concomitant]
  5. DULCOLAX [Concomitant]

REACTIONS (3)
  - INJECTION SITE CELLULITIS [None]
  - INJECTION SITE NECROSIS [None]
  - INJECTION SITE REACTION [None]
